FAERS Safety Report 12391555 (Version 1)
Quarter: 2016Q2

REPORT INFORMATION
  Report Type: Spontaneous
  Country: DK (occurrence: DK)
  Receive Date: 20160521
  Receipt Date: 20160521
  Transmission Date: 20160815
  Serious: Yes (Other)
  Sender: FDA-Public Use
  Company Number: DK-AUROBINDO-AUR-APL-2016-06018

PATIENT

DRUGS (1)
  1. CLARITHROMYCIN AUROBINDO [Suspect]
     Active Substance: CLARITHROMYCIN
     Indication: PRODUCT USED FOR UNKNOWN INDICATION
     Dosage: 245
     Route: 065
     Dates: start: 20151229, end: 201601

REACTIONS (4)
  - Syncope [Recovering/Resolving]
  - Dizziness [Recovering/Resolving]
  - Malaise [Recovering/Resolving]
  - Renal function test abnormal [Recovering/Resolving]
